FAERS Safety Report 4276066-9 (Version None)
Quarter: 2004Q1

REPORT INFORMATION
  Report Type: 
  Country: None (occurrence: None)
  Receive Date: 20040121
  Receipt Date: 20030731
  Transmission Date: 20041129
  Serious: No
  Sender: FDA-Public Use
  Company Number: US-GLAXOSMITHKLINE-A0419756A

PATIENT
  Age: 33 Year
  Sex: Female

DRUGS (3)
  1. VALTREX [Suspect]
     Dosage: 500MG PER DAY
     Route: 048
     Dates: start: 20030729
  2. CENTRUM [Concomitant]
  3. CONTRACEPTIVE [Concomitant]

REACTIONS (1)
  - DRUG INEFFECTIVE [None]
